FAERS Safety Report 24299005 (Version 2)
Quarter: 2024Q3

REPORT INFORMATION
  Report Type: Spontaneous
  Country: US (occurrence: US)
  Receive Date: 20240909
  Receipt Date: 20240920
  Transmission Date: 20241016
  Serious: No
  Sender: GUERBET
  Company Number: US-GUERBET / LLC-US-20240102

PATIENT
  Age: 50 Year
  Sex: Female
  Weight: 102.96 kg

DRUGS (1)
  1. DOTAREM [Suspect]
     Active Substance: GADOTERATE MEGLUMINE
     Indication: Magnetic resonance imaging
     Route: 042
     Dates: start: 20240617, end: 20240617

REACTIONS (4)
  - Sinus congestion [Recovered/Resolved]
  - Headache [Recovered/Resolved]
  - Dyspnoea [Recovered/Resolved]
  - Dysphagia [Recovered/Resolved]

NARRATIVE: CASE EVENT DATE: 20240617
